FAERS Safety Report 5943578-9 (Version None)
Quarter: 2008Q4

REPORT INFORMATION
  Report Type: 
  Country: None (occurrence: None)
  Receive Date: 20081106
  Receipt Date: 20080422
  Transmission Date: 20090506
  Serious: No
  Sender: FDA-Public Use
  Company Number: A0725175A

PATIENT
  Sex: Male

DRUGS (1)
  1. AMOXIL [Suspect]
     Indication: DRUG USE FOR UNKNOWN INDICATION

REACTIONS (1)
  - KETOSIS [None]
